FAERS Safety Report 4871222-0 (Version None)
Quarter: 2006Q1

REPORT INFORMATION
  Report Type: 
  Country: None (occurrence: None)
  Receive Date: 20060103
  Receipt Date: 20011012
  Transmission Date: 20060701
  Serious: Yes (Hospitalization, Other)
  Sender: FDA-Public Use
  Company Number: AU-ABBOTT-01P-008-0111982-01

PATIENT
  Sex: Male

DRUGS (4)
  1. FENOFIBRATE [Suspect]
     Indication: DYSLIPIDAEMIA
     Route: 048
     Dates: start: 19990610
  2. METFORMIN HYDROCHLORIDE [Concomitant]
     Indication: DRUG USE FOR UNKNOWN INDICATION
     Dates: start: 19970101
  3. GLIBENCLAMIDE [Concomitant]
     Indication: DRUG USE FOR UNKNOWN INDICATION
     Dates: start: 19970101
  4. VERAPAMIL HYDROCHLORIDE [Concomitant]
     Indication: DRUG USE FOR UNKNOWN INDICATION
     Dates: start: 20000301

REACTIONS (1)
  - TESTICULAR DISORDER [None]
